FAERS Safety Report 23803893 (Version 2)
Quarter: 2024Q2

REPORT INFORMATION
  Report Type: Spontaneous
  Country: CN (occurrence: CN)
  Receive Date: 20240501
  Receipt Date: 20240530
  Transmission Date: 20240716
  Serious: Yes (Hospitalization, Other)
  Sender: FDA-Public Use
  Company Number: CN-009507513-2404CHN011337

PATIENT
  Age: 73 Year
  Sex: Male
  Weight: 68.6 kg

DRUGS (1)
  1. INVANZ [Suspect]
     Active Substance: ERTAPENEM SODIUM
     Indication: Pneumonia
     Dosage: 1 GRAM, QD
     Route: 041
     Dates: start: 20240408, end: 20240410

REACTIONS (2)
  - Coma [Recovering/Resolving]
  - Cerebral infarction [Unknown]

NARRATIVE: CASE EVENT DATE: 20240401
